FAERS Safety Report 17762092 (Version 2)
Quarter: 2020Q2

REPORT INFORMATION
  Report Type: Spontaneous
  Country: GR (occurrence: GR)
  Receive Date: 20200508
  Receipt Date: 20200519
  Transmission Date: 20200714
  Serious: Yes (Hospitalization)
  Sender: FDA-Public Use
  Company Number: NVSC2020GR110694

PATIENT
  Sex: Female
  Weight: 60 kg

DRUGS (38)
  1. RITUXIMAB. [Suspect]
     Active Substance: RITUXIMAB
     Dosage: 8 OT, CYCLIC
     Route: 042
     Dates: start: 20190513, end: 20191013
  2. ESHAP [Suspect]
     Active Substance: CISPLATIN\CYTARABINE\ETOPOSIDE\METHYLPREDNISOLONE (ESHAP)
     Indication: DIFFUSE LARGE B-CELL LYMPHOMA
     Dosage: UNK
     Route: 065
     Dates: start: 20191113, end: 20191223
  3. ALDACTONE [Suspect]
     Active Substance: SPIRONOLACTONE
     Dosage: UNK
     Route: 042
  4. VEPESID [Suspect]
     Active Substance: ETOPOSIDE
     Dosage: UNK
     Route: 058
  5. MABTHERA [Suspect]
     Active Substance: RITUXIMAB
     Dosage: 1 OT, CYCLIC
     Route: 058
     Dates: start: 20191113, end: 20191210
  6. VALTREX [Suspect]
     Active Substance: VALACYCLOVIR HYDROCHLORIDE
     Indication: NON-HODGKIN^S LYMPHOMA
     Route: 058
  7. ARACYTINE [Suspect]
     Active Substance: CYTARABINE
     Indication: NON-HODGKIN^S LYMPHOMA
     Dosage: 3 G
     Route: 042
     Dates: start: 20191123, end: 20200113
  8. LASIX [Suspect]
     Active Substance: FUROSEMIDE
     Indication: NON-HODGKIN^S LYMPHOMA
     Dosage: UNK
     Route: 042
     Dates: start: 20200110, end: 20200113
  9. CISPLATIN. [Suspect]
     Active Substance: CISPLATIN
     Indication: NON-HODGKIN^S LYMPHOMA
     Dosage: UNK
     Route: 058
  10. CISPLATIN. [Suspect]
     Active Substance: CISPLATIN
     Dosage: 38 MG, CYCLIC (2 CYCLES)
     Route: 042
     Dates: start: 20191119, end: 20200113
  11. MEROPENEM. [Suspect]
     Active Substance: MEROPENEM
     Indication: NON-HODGKIN^S LYMPHOMA
     Dosage: 2 G
     Route: 042
     Dates: start: 20200103, end: 20200113
  12. CANCIDAS [Suspect]
     Active Substance: CASPOFUNGIN ACETATE
     Indication: NON-HODGKIN^S LYMPHOMA
     Dosage: 50 MG
     Route: 042
     Dates: start: 20200105, end: 20200113
  13. VEPESID [Suspect]
     Active Substance: ETOPOSIDE
     Indication: NON-HODGKIN^S LYMPHOMA
     Dosage: UNK
     Route: 058
  14. MABTHERA [Suspect]
     Active Substance: RITUXIMAB
     Dosage: 650 MG, CYCLIC
     Route: 042
     Dates: start: 20191222, end: 20200113
  15. NORVASC [Suspect]
     Active Substance: AMLODIPINE BESYLATE
     Indication: HYPERTENSION
     Dosage: 5 MG, CYCLIC
     Route: 048
     Dates: start: 20190515, end: 20190516
  16. RITUXIMAB HYALURONIDASE, HUMAN RECOMBINANT [Suspect]
     Active Substance: HYALURONIDASE (HUMAN RECOMBINANT)\RITUXIMAB
     Indication: DIFFUSE LARGE B-CELL LYMPHOMA
     Dosage: UNK
     Route: 058
     Dates: start: 20190513, end: 20190625
  17. HUMAN ALBUMIN [Suspect]
     Active Substance: ALBUMIN HUMAN
     Indication: NON-HODGKIN^S LYMPHOMA
     Dosage: 100 MG, CYCLIC (50 MG X2)
     Route: 042
     Dates: start: 20200110, end: 20200113
  18. CHOP [Suspect]
     Active Substance: CYCLOPHOSPHAMIDE\DOXORUBICIN\PREDNISONE\VINCRISTINE
     Indication: DIFFUSE LARGE B-CELL LYMPHOMA
     Dosage: UNK
     Route: 065
     Dates: start: 20190513, end: 20191013
  19. VEPESID [Suspect]
     Active Substance: ETOPOSIDE
     Dosage: 90 MG, CYCLIC (2 CYCLES)
     Route: 042
     Dates: start: 20191119, end: 20200113
  20. VALTREX [Suspect]
     Active Substance: VALACYCLOVIR HYDROCHLORIDE
     Dosage: 500 MG
     Route: 048
     Dates: start: 20190513, end: 20190516
  21. OMEPRAZOLE. [Suspect]
     Active Substance: OMEPRAZOLE
     Indication: NON-HODGKIN^S LYMPHOMA
     Dosage: UNK
     Route: 042
     Dates: start: 20191223, end: 20200113
  22. VALTREX [Suspect]
     Active Substance: VALACYCLOVIR HYDROCHLORIDE
     Dosage: 500 MG
     Route: 048
     Dates: start: 20200108, end: 20200113
  23. VALTREX [Suspect]
     Active Substance: VALACYCLOVIR HYDROCHLORIDE
     Dosage: UNK
     Route: 042
  24. FILGRASTIM [Suspect]
     Active Substance: FILGRASTIM
     Indication: LEUKOPENIA
     Dosage: UNK
     Route: 058
     Dates: start: 20190523, end: 20200117
  25. DOXORUBICIN [Suspect]
     Active Substance: DOXORUBICIN
     Indication: NON-HODGKIN^S LYMPHOMA
     Dosage: 75 MG
     Route: 042
     Dates: start: 20190513, end: 20191009
  26. DOXORUBICIN [Suspect]
     Active Substance: DOXORUBICIN
     Dosage: UNK
     Route: 058
  27. EPOETIN [Suspect]
     Active Substance: ERYTHROPOIETIN
     Indication: ANAEMIA
     Dosage: UNK
     Route: 058
     Dates: start: 20190523, end: 20200124
  28. ALDACTONE [Suspect]
     Active Substance: SPIRONOLACTONE
     Indication: NON-HODGKIN^S LYMPHOMA
     Dosage: 100 MG
     Route: 048
     Dates: start: 20200105, end: 20200112
  29. MABTHERA [Suspect]
     Active Substance: RITUXIMAB
     Indication: NON-HODGKIN^S LYMPHOMA
     Dosage: 1400 MG, CYCLIC (6 CYCLES)
     Route: 058
     Dates: start: 20190625, end: 20191009
  30. CHLORPHENAMINE [Suspect]
     Active Substance: CHLORPHENIRAMINE MALEATE
     Indication: NON-HODGKIN^S LYMPHOMA
     Dosage: UNK
     Route: 048
     Dates: start: 20200110, end: 20200112
  31. CHLORPHENAMINE [Suspect]
     Active Substance: CHLORPHENIRAMINE MALEATE
     Dosage: UNK
     Route: 042
  32. CUBICIN [Suspect]
     Active Substance: DAPTOMYCIN
     Indication: NON-HODGKIN^S LYMPHOMA
     Dosage: 350 MG, CYCLIC
     Route: 042
     Dates: start: 20200102, end: 20200113
  33. RITUXIMAB. [Suspect]
     Active Substance: RITUXIMAB
     Indication: DIFFUSE LARGE B-CELL LYMPHOMA
     Dosage: UNK
     Route: 042
     Dates: start: 20190513, end: 20191013
  34. MABTHERA [Suspect]
     Active Substance: RITUXIMAB
     Dosage: 1400 MG
     Route: 058
     Dates: start: 20191113, end: 20191210
  35. LOSECA [Suspect]
     Active Substance: OMEPRAZOLE
     Indication: NON-HODGKIN^S LYMPHOMA
     Dosage: UNK
     Route: 042
     Dates: start: 20191223, end: 20200113
  36. ARACYTINE [Suspect]
     Active Substance: CYTARABINE
     Dosage: UNK
     Route: 058
  37. RITUXIMAB. [Suspect]
     Active Substance: RITUXIMAB
     Dosage: 2 OT, CYCLIC
     Route: 042
     Dates: start: 20191113, end: 20191223
  38. NORVASC [Suspect]
     Active Substance: AMLODIPINE BESYLATE
     Dosage: UNK
     Route: 058

REACTIONS (2)
  - Diffuse large B-cell lymphoma refractory [Unknown]
  - Disease progression [Unknown]
